FAERS Safety Report 6716015-4 (Version None)
Quarter: 2010Q2

REPORT INFORMATION
  Report Type: 
  Country: None (occurrence: None)
  Receive Date: 20100507
  Receipt Date: 20100426
  Transmission Date: 20101027
  Serious: Yes (Hospitalization)
  Sender: FDA-Public Use
  Company Number: BR-MEDIMMUNE-MEDI-0011159

PATIENT
  Sex: Male
  Weight: 6.1 kg

DRUGS (10)
  1. SYNAGIS [Suspect]
     Route: 030
     Dates: start: 20090720
  2. SYNAGIS [Suspect]
     Indication: BRONCHOPULMONARY DYSPLASIA
  3. SYNAGIS [Suspect]
  4. PROTOVIT [Concomitant]
     Route: 048
  5. BUDESONIDE [Concomitant]
     Indication: INFECTION PROPHYLAXIS
     Route: 045
     Dates: start: 20090901
  6. FERROGLYCINATE CHELATE [Concomitant]
     Route: 048
  7. DOMPERIDINE [Concomitant]
     Route: 048
  8. RANITIDINE [Concomitant]
     Route: 048
     Dates: start: 20090801, end: 20100316
  9. PENICILLIN GRUNENTHAL [Concomitant]
     Indication: PNEUMONIA
     Dates: start: 20090801, end: 20090801
  10. AMPICILLIN [Concomitant]
     Indication: PNEUMONIA
     Dates: start: 20090801, end: 20090801

REACTIONS (3)
  - BRONCHIOLITIS [None]
  - NOSOCOMIAL INFECTION [None]
  - PYREXIA [None]
